FAERS Safety Report 16853799 (Version 3)
Quarter: 2019Q4

REPORT INFORMATION
  Report Type: Spontaneous
  Country: US (occurrence: US)
  Receive Date: 20190926
  Receipt Date: 20191009
  Transmission Date: 20200122
  Serious: Yes (Other)
  Sender: FDA-Public Use
  Company Number: US-AMGEN INC.-USASP2019157190

PATIENT
  Age: 34 Year
  Sex: Female
  Weight: 97.51 kg

DRUGS (5)
  1. INDOMETHACIN [INDOMETACIN] [Concomitant]
     Active Substance: INDOMETHACIN
     Indication: HEADACHE
     Dosage: (25-50 MILLIGRAM), AS NECESSARY (PRN)
     Dates: start: 201810, end: 201909
  2. AIMOVIG [Suspect]
     Active Substance: ERENUMAB-AOOE
     Indication: MIGRAINE
     Dosage: 140 MILLIGRAM
     Route: 058
     Dates: start: 201807, end: 201909
  3. EFFEXOR [Concomitant]
     Active Substance: VENLAFAXINE HYDROCHLORIDE
     Indication: DEPRESSION
     Dosage: 150 UNIT, QD
     Dates: start: 201807
  4. TORADOL [Concomitant]
     Active Substance: KETOROLAC TROMETHAMINE
     Dosage: UNK
  5. ASPIRIN [ACETYLSALICYLIC ACID] [Concomitant]
     Active Substance: ASPIRIN
     Indication: COAGULOPATHY
     Dosage: 81 MILLIGRAM
     Dates: start: 201807, end: 201810

REACTIONS (6)
  - Therapeutic product effect decreased [Unknown]
  - Cerebral haemorrhage [Recovered/Resolved]
  - Headache [Unknown]
  - Lacunar infarction [Recovered/Resolved]
  - Diastolic dysfunction [Unknown]
  - Basal ganglia haemorrhage [Recovered/Resolved]

NARRATIVE: CASE EVENT DATE: 201901
